FAERS Safety Report 21433680 (Version 1)
Quarter: 2022Q4

REPORT INFORMATION
  Report Type: Spontaneous
  Country: US (occurrence: US)
  Receive Date: 20221010
  Receipt Date: 20221010
  Transmission Date: 20230113
  Serious: No
  Sender: FDA-Public Use
  Company Number: ENDG22-05201

PATIENT
  Age: 68 Year
  Sex: Female

DRUGS (2)
  1. CHOLESTYRAMINE LIGHT [Suspect]
     Active Substance: CHOLESTYRAMINE
     Indication: Chronic inflammatory response syndrome
     Dosage: 4 G, QID (4G SCOOP WITH FOOD QID MIXED WITH 4-6 OUNCES OF WATER)
     Route: 048
     Dates: start: 20220811, end: 20220813
  2. CHOLESTYRAMINE LIGHT [Suspect]
     Active Substance: CHOLESTYRAMINE
     Dosage: UNK UNKNOWN, QID (TITRATE TO 8G QID)
     Route: 048
     Dates: start: 20220811, end: 20220813

REACTIONS (5)
  - Gastritis [Recovered/Resolved]
  - Oesophagitis [Recovered/Resolved]
  - Influenza like illness [Recovered/Resolved]
  - Product taste abnormal [Recovered/Resolved]
  - Off label use [Recovered/Resolved]

NARRATIVE: CASE EVENT DATE: 20220811
